FAERS Safety Report 7839705 (Version 3)
Quarter: 2012Q4

REPORT INFORMATION
  Report Type: Report from Study
  Country: JP (occurrence: JP)
  Receive Date: 20110303
  Receipt Date: 20120911
  Transmission Date: 20130627
  Serious: Yes (Hospitalization)
  Sender: FDA-Public Use
  Company Number: JP-PFIZER INC-2011037070

PATIENT
  Age: 47 Year
  Sex: Male

DRUGS (28)
  1. ADRIACIN [Suspect]
     Indication: ADULT T-CELL LYMPHOMA/LEUKAEMIA
     Dosage: 40 mg/m2, x 1/4 week
     Route: 041
     Dates: start: 20101119
  2. ADRIACIN [Suspect]
     Dosage: 30 mg/m2, x 1/4 week
     Route: 041
     Dates: start: 20101126
  3. ONCOVIN [Suspect]
     Indication: ADULT T-CELL LYMPHOMA/LEUKAEMIA
     Dosage: 1 mg/m2, x 1/4 week
     Route: 041
     Dates: start: 20101119
  4. ENDOXAN [Suspect]
     Indication: ADULT T-CELL LYMPHOMA/LEUKAEMIA
     Dosage: 350 mg/m2, x 1/4 week
     Route: 041
     Dates: start: 20101119
  5. PREDONINE [Suspect]
     Indication: ADULT T-CELL LYMPHOMA/LEUKAEMIA
     Dosage: 40 mg/m2, x 1/4 week
     Route: 048
     Dates: start: 20101119
  6. PREDONINE [Suspect]
     Dosage: 40 mg/m2, x 1/4 week
     Route: 048
     Dates: start: 20101126
  7. PREDNISOLONE [Suspect]
     Indication: ADULT T-CELL LYMPHOMA/LEUKAEMIA
     Dosage: 40 mg/m2, x 1/4 week
     Route: 048
     Dates: start: 20101208
  8. RANIMUSTINE [Suspect]
     Indication: ADULT T-CELL LYMPHOMA/LEUKAEMIA
     Dosage: 60 mg/m2, x 1/4 week
     Route: 041
     Dates: start: 20101126
  9. VINDESINE [Suspect]
     Indication: ADULT T-CELL LYMPHOMA/LEUKAEMIA
     Dosage: 2.4 mg/m2, x 1/4 week
     Route: 041
     Dates: start: 20101208
  10. UNSPECIFIED INGREDIENT [Suspect]
     Indication: ADULT T-CELL LYMPHOMA/LEUKAEMIA
     Dosage: 100 mg/m2, x 1/4 week
     Route: 041
     Dates: start: 20101208
  11. PARAPLATIN [Suspect]
     Indication: ADULT T-CELL LYMPHOMA/LEUKAEMIA
     Dosage: 250 mg/m2, x 1/4 week
     Route: 041
     Dates: start: 20101208
  12. MUCOSTA [Concomitant]
     Dosage: 100 mg, 3x/day
     Route: 048
     Dates: start: 20100118
  13. MAGMITT [Concomitant]
     Dosage: 330 mg, UNK
     Route: 048
     Dates: start: 20101116
  14. BACTRAMIN [Concomitant]
     Dosage: 100 mg, 1x/day
     Route: 048
     Dates: start: 20101117
  15. ITRIZOLE [Concomitant]
     Dosage: 20 ml, 1x/day
     Route: 048
     Dates: start: 20101121
  16. MYSLEE [Concomitant]
     Dosage: 5 mg, UNK
     Route: 048
     Dates: start: 20101122
  17. LAXOBERON [Concomitant]
     Dosage: 10 Gtt, UNK
     Route: 048
     Dates: start: 20101123
  18. TAKEPRON [Concomitant]
     Dosage: 15 mg, 3x/day
     Route: 048
     Dates: start: 20101229
  19. LOXONIN [Concomitant]
     Dosage: 60 mg, UNK
     Route: 048
     Dates: start: 20110111
  20. POSTERISAN [Concomitant]
     Dosage: UNK
     Route: 061
     Dates: start: 20110208
  21. GRAN [Concomitant]
     Dosage: 75 ug, 1x/day
     Route: 058
     Dates: start: 20110210, end: 20110212
  22. CRAVIT [Concomitant]
     Dosage: 500 mg, 1x/day
     Route: 048
     Dates: start: 20110211
  23. MIYA-BM [Concomitant]
     Dosage: 1 DF, 3x/day
     Route: 048
     Dates: start: 20110211
  24. ZOSYN [Concomitant]
     Dosage: 4.5 mg, 2x/day
     Route: 041
     Dates: start: 20110212, end: 20110212
  25. ZOSYN [Concomitant]
     Dosage: 4.5 mg, 3x/day
     Route: 041
     Dates: start: 20110213
  26. NEUTROGIN [Concomitant]
     Dosage: 250 ug, 1x/day
     Route: 041
     Dates: start: 20110213
  27. PLATELETS, HUMAN BLOOD [Concomitant]
     Dosage: 10 IU/day
     Dates: start: 20110213, end: 20110217
  28. RED BLOOD CELLS, LEUCOCYTE DEPLETED [Concomitant]
     Dosage: 2 IU/day
     Dates: start: 20110215, end: 20110216

REACTIONS (1)
  - Febrile neutropenia [Recovered/Resolved]
